FAERS Safety Report 17678592 (Version 1)
Quarter: 2020Q2

REPORT INFORMATION
  Report Type: Spontaneous
  Country: CA (occurrence: CA)
  Receive Date: 20200417
  Receipt Date: 20200417
  Transmission Date: 20200714
  Serious: Yes (Other)
  Sender: FDA-Public Use
  Company Number: CA-009507513-2004CAN002962

PATIENT
  Sex: Female

DRUGS (14)
  1. ACYCLOVIR. [Suspect]
     Active Substance: ACYCLOVIR
     Dosage: UNK
     Route: 064
  2. LAMIVUDINE. [Suspect]
     Active Substance: LAMIVUDINE
     Dosage: 150 MILLIGRAM, UNK
     Route: 064
  3. ZIDOVUDINE. [Suspect]
     Active Substance: ZIDOVUDINE
     Dosage: 300 MILLIGRAM, UNK
     Route: 064
  4. INTELENCE [Suspect]
     Active Substance: ETRAVIRINE
     Dosage: 200 MILLIGRAM, 1 EVERY 1 DAYS
     Route: 064
  5. MAGNESIUM GLUCONATE [Concomitant]
     Active Substance: MAGNESIUM GLUCONATE
     Dosage: UNK
     Route: 065
  6. RITONAVIR. [Suspect]
     Active Substance: RITONAVIR
     Dosage: 100 MILLIGRAM, UNK
     Route: 064
  7. BACTRIM [Suspect]
     Active Substance: SULFAMETHOXAZOLE\TRIMETHOPRIM
     Dosage: UNK
     Route: 064
  8. FOLIC ACID. [Concomitant]
     Active Substance: FOLIC ACID
     Dosage: UNK
     Route: 064
  9. ABACAVIR. [Suspect]
     Active Substance: ABACAVIR
     Dosage: 300 MILLIGRAM, 1 EVERY 1 DAYS
     Route: 064
  10. ISENTRESS [Suspect]
     Active Substance: RALTEGRAVIR POTASSIUM
     Dosage: 400 MILLIGRAM, UNK
     Route: 064
  11. VIREAD [Suspect]
     Active Substance: TENOFOVIR DISOPROXIL FUMARATE
     Dosage: 200 MILLIGRAM, 1 EVERY 1 DAYS
     Route: 062
  12. PMS-AZITHROMYCIN [Suspect]
     Active Substance: AZITHROMYCIN ANHYDROUS
     Dosage: UNK
     Route: 064
  13. PREZISTA [Suspect]
     Active Substance: DARUNAVIR ETHANOLATE
     Dosage: 600 MILLIGRAM, UNK
     Route: 064
  14. IRON (UNSPECIFIED) [Concomitant]
     Active Substance: IRON
     Dosage: UNK
     Route: 064

REACTIONS (2)
  - Anaemia [Recovered/Resolved]
  - Foetal exposure during pregnancy [Recovered/Resolved]
